FAERS Safety Report 4532763-9 (Version None)
Quarter: 2004Q4

REPORT INFORMATION
  Report Type: 
  Country: None (occurrence: None)
  Receive Date: 20041206
  Receipt Date: 20040929
  Transmission Date: 20050328
  Serious: No
  Sender: FDA-Public Use
  Company Number: USA040979708

PATIENT
  Age: 50 Year
  Sex: Female
  Weight: 59 kg

DRUGS (5)
  1. CYMBALTA [Suspect]
     Indication: DEPRESSION
     Dosage: 30 MG DAY
     Dates: start: 20040928
  2. MIACALCIN [Concomitant]
  3. KLONOPIN [Concomitant]
  4. OSCAL (CALCIUM CARBONATE) [Concomitant]
  5. MULTI-VITAMINS [Concomitant]

REACTIONS (2)
  - INSOMNIA [None]
  - NAUSEA [None]
